FAERS Safety Report 7156395-1 (Version None)
Quarter: 2010Q4

REPORT INFORMATION
  Report Type: 
  Country: None (occurrence: None)
  Receive Date: 20101214
  Receipt Date: 20101204
  Transmission Date: 20110411
  Serious: Yes (Death)
  Sender: FDA-Public Use
  Company Number: IN-BAXTER-2010BH029267

PATIENT
  Age: 50 Year
  Sex: Male

DRUGS (1)
  1. DIANEAL [Suspect]
     Indication: PERITONEAL DIALYSIS
     Route: 033
     Dates: start: 20101028, end: 20101110

REACTIONS (5)
  - CARDIAC DISORDER [None]
  - MYOCARDIAL INFARCTION [None]
  - PERITONITIS BACTERIAL [None]
  - STAPHYLOCOCCUS TEST POSITIVE [None]
  - WRONG TECHNIQUE IN DRUG USAGE PROCESS [None]
